FAERS Safety Report 23799684 (Version 1)
Quarter: 2024Q2

REPORT INFORMATION
  Report Type: Spontaneous
  Country: US (occurrence: None)
  Receive Date: 20240429
  Receipt Date: 20240429
  Transmission Date: 20240716
  Serious: Yes (Other)
  Sender: FDA-Public Use
  Company Number: None

PATIENT
  Age: 39 Year
  Sex: Male
  Weight: 121.5 kg

DRUGS (1)
  1. ZEPBOUND [Suspect]
     Active Substance: TIRZEPATIDE
     Indication: Obesity
     Dosage: OTHER FREQUENCY : WEEKLY;?
     Route: 058
     Dates: start: 20231211, end: 20240308

REACTIONS (8)
  - Mental disorder [None]
  - Anxiety [None]
  - Depression [None]
  - Formication [None]
  - Disturbance in attention [None]
  - Sleep disorder [None]
  - Suicidal ideation [None]
  - Alcohol use [None]

NARRATIVE: CASE EVENT DATE: 20240322
